FAERS Safety Report 11825017 (Version 1)
Quarter: 2015Q4

REPORT INFORMATION
  Report Type: Spontaneous
  Country: GB (occurrence: GB)
  Receive Date: 20151211
  Receipt Date: 20151211
  Transmission Date: 20160305
  Serious: Yes (Other)
  Sender: FDA-Public Use
  Company Number: GB-ROCHE-1481399

PATIENT
  Sex: Female
  Weight: 73 kg

DRUGS (3)
  1. HERCEPTIN [Suspect]
     Active Substance: TRASTUZUMAB
     Indication: PRODUCT USED FOR UNKNOWN INDICATION
     Route: 058
  2. HERCEPTIN [Suspect]
     Active Substance: TRASTUZUMAB
     Indication: PRODUCT USED FOR UNKNOWN INDICATION
     Route: 042
  3. QUESTRAN [Concomitant]
     Active Substance: CHOLESTYRAMINE

REACTIONS (12)
  - Insomnia [Unknown]
  - Asthenia [Unknown]
  - Dementia Alzheimer^s type [Unknown]
  - Family stress [Unknown]
  - Stress [Unknown]
  - Memory impairment [Unknown]
  - Muscle spasms [Unknown]
  - Diarrhoea [Not Recovered/Not Resolved]
  - Irritable bowel syndrome [Not Recovered/Not Resolved]
  - Nausea [Unknown]
  - Fatigue [Unknown]
  - Sleep disorder [Unknown]
